FAERS Safety Report 6414206-3 (Version None)
Quarter: 2009Q4

REPORT INFORMATION
  Report Type: 
  Country: None (occurrence: None)
  Receive Date: 20091026
  Receipt Date: 20091014
  Transmission Date: 20100525
  Serious: Yes (Other)
  Sender: FDA-Public Use
  Company Number: JP-PFIZER INC-2009239751

PATIENT
  Age: 30 Year

DRUGS (4)
  1. ZITHROMAC SR [Suspect]
     Dosage: 2 G, 1X/DAY
     Route: 048
     Dates: start: 20090708, end: 20090708
  2. ASVERIN [Concomitant]
     Dosage: UNK
     Route: 048
     Dates: start: 20090708
  3. MUCODYNE [Concomitant]
     Dosage: UNK
     Route: 048
     Dates: start: 20090708
  4. SOLANTAL [Concomitant]
     Dosage: UNK
     Route: 048
     Dates: start: 20090708

REACTIONS (6)
  - ABDOMINAL PAIN [None]
  - CONTUSION [None]
  - DIARRHOEA [None]
  - LOSS OF CONSCIOUSNESS [None]
  - MUSCULOSKELETAL PAIN [None]
  - PRESYNCOPE [None]
